FAERS Safety Report 4749555-8 (Version None)
Quarter: 2005Q3

REPORT INFORMATION
  Report Type: 
  Country: None (occurrence: None)
  Receive Date: 20050822
  Receipt Date: 20050808
  Transmission Date: 20060218
  Serious: Yes (Other)
  Sender: FDA-Public Use
  Company Number: US-JNJFOC-20050804438

PATIENT
  Sex: Female
  Weight: 86.18 kg

DRUGS (7)
  1. MOTRIN [Suspect]
     Indication: BACK PAIN
     Route: 048
  2. MOTRIN [Suspect]
     Route: 048
  3. FENFLURAMINE [Suspect]
     Indication: DRUG USE FOR UNKNOWN INDICATION
  4. PHENTERMINE [Suspect]
     Indication: DRUG USE FOR UNKNOWN INDICATION
  5. THYROID TAB [Concomitant]
     Route: 048
  6. DETROL LA [Concomitant]
     Route: 048
  7. NITROFURANTION [Concomitant]
     Route: 048

REACTIONS (4)
  - CARDIAC VALVE DISEASE [None]
  - HEART VALVE INSUFFICIENCY [None]
  - JOINT SWELLING [None]
  - OEDEMA PERIPHERAL [None]
